FAERS Safety Report 16754760 (Version 1)
Quarter: 2019Q3

REPORT INFORMATION
  Report Type: Spontaneous
  Country: US (occurrence: US)
  Receive Date: 20190829
  Receipt Date: 20190829
  Transmission Date: 20191005
  Serious: No
  Sender: FDA-Public Use
  Company Number: US-PFIZER INC-2019367629

PATIENT
  Age: 74 Year
  Sex: Male

DRUGS (1)
  1. NORVASC [Suspect]
     Active Substance: AMLODIPINE BESYLATE
     Dosage: 2.5 MG, UNK (6 DAYS AGO )

REACTIONS (4)
  - Nervousness [Unknown]
  - Anxiety [Unknown]
  - Feeling jittery [Unknown]
  - Insomnia [Unknown]
